FAERS Safety Report 5601115-2 (Version None)
Quarter: 2008Q1

REPORT INFORMATION
  Report Type: 
  Country: None (occurrence: None)
  Receive Date: 20080124
  Receipt Date: 20080111
  Transmission Date: 20080703
  Serious: Yes (Other)
  Sender: FDA-Public Use
  Company Number: US-AMGEN-QUU260283

PATIENT
  Age: 43 Year
  Sex: Female
  Weight: 74.9 kg

DRUGS (5)
  1. ENBREL [Suspect]
     Indication: RHEUMATOID ARTHRITIS
     Route: 058
     Dates: start: 20071101, end: 20080101
  2. PLAQUENIL [Concomitant]
     Route: 048
  3. METHOTREXATE [Concomitant]
     Route: 058
  4. FOLIC ACID [Concomitant]
     Route: 048
  5. ULTRAM [Concomitant]
     Route: 048

REACTIONS (1)
  - OVARIAN NEOPLASM [None]
